FAERS Safety Report 23342926 (Version 1)
Quarter: 2023Q4

REPORT INFORMATION
  Report Type: Spontaneous
  Country: None (occurrence: US)
  Receive Date: 20231227
  Receipt Date: 20231227
  Transmission Date: 20240110
  Serious: No
  Sender: FDA-Public Use
  Company Number: US-LNK INTERNATIONAL, INC.-2149830

PATIENT
  Age: 8 Year
  Sex: Female

DRUGS (3)
  1. EQUATE CHILDRENS PAIN AND FEVER [Suspect]
     Active Substance: ACETAMINOPHEN
     Indication: Pyrexia
  2. SINGULAIR [Concomitant]
     Active Substance: MONTELUKAST SODIUM
  3. ZYRTEC [Concomitant]
     Active Substance: CETIRIZINE HYDROCHLORIDE

REACTIONS (1)
  - Kidney infection [None]
